FAERS Safety Report 5667312-5 (Version None)
Quarter: 2008Q1

REPORT INFORMATION
  Report Type: 
  Country: None (occurrence: None)
  Receive Date: 20080315
  Receipt Date: 20080121
  Transmission Date: 20080703
  Serious: No
  Sender: FDA-Public Use
  Company Number: US-ABBOTT-08P-163-0434322-00

PATIENT
  Sex: Female
  Weight: 83.99 kg

DRUGS (14)
  1. HUMIRA [Suspect]
     Indication: RHEUMATOID ARTHRITIS
     Route: 058
     Dates: start: 20070405, end: 20071227
  2. METOPROLOL TARTRATE [Concomitant]
     Indication: HYPERTENSION
     Route: 048
  3. ISOSORBIDE DINITRATE [Concomitant]
     Indication: CARDIAC DISORDER
     Route: 048
  4. NABUMETONE [Concomitant]
     Indication: ARTHRITIS
     Route: 048
  5. FOFINOPRIL [Concomitant]
     Indication: ATRIOVENTRICULAR BLOCK
  6. ESCITALOPRAM OXALATE [Concomitant]
     Indication: DEPRESSION
     Route: 048
  7. CADUET [Concomitant]
     Indication: HYPERTENSION
     Route: 048
  8. EZETIMIBE [Concomitant]
     Indication: BLOOD CHOLESTEROL INCREASED
     Route: 048
  9. ACETYLSALICYLIC ACID [Concomitant]
     Indication: ATRIOVENTRICULAR BLOCK
     Route: 048
  10. AIPRAZOLAM [Concomitant]
     Indication: ANXIETY
     Route: 048
  11. GLYCERYL TRINITRATE [Concomitant]
     Indication: CARDIAC DISORDER
     Route: 060
  12. FOLIC ACID [Concomitant]
     Indication: VITAMIN SUPPLEMENTATION
     Route: 048
  13. METHOTREXATE [Concomitant]
     Indication: RHEUMATOID ARTHRITIS
     Route: 048
  14. ATORVASTATIN CALCIUM [Concomitant]
     Indication: HYPERTENSION
     Route: 048

REACTIONS (1)
  - BRONCHITIS [None]
